FAERS Safety Report 6819012-3 (Version None)
Quarter: 2010Q3

REPORT INFORMATION
  Report Type: 
  Country: None (occurrence: None)
  Receive Date: 20100701
  Receipt Date: 20100624
  Transmission Date: 20110219
  Serious: Yes (Other)
  Sender: FDA-Public Use
  Company Number: 2010SP021902

PATIENT
  Age: 38 Year
  Sex: Female

DRUGS (2)
  1. NUVARING [Suspect]
     Indication: CONTRACEPTION
     Dosage: 1 DF; QM; VAG
     Route: 067
     Dates: start: 20100110, end: 20100427
  2. FLUOXETINE HCL [Concomitant]

REACTIONS (3)
  - BURNING SENSATION [None]
  - LIP PAIN [None]
  - PARAESTHESIA ORAL [None]
